FAERS Safety Report 16910806 (Version 2)
Quarter: 2019Q4

REPORT INFORMATION
  Report Type: Spontaneous
  Country: US (occurrence: US)
  Receive Date: 20191012
  Receipt Date: 20191201
  Transmission Date: 20200122
  Serious: Yes (Other)
  Sender: FDA-Public Use
  Company Number: US-UNITED THERAPEUTICS-UNT-2019-016783

PATIENT
  Age: 50 Year
  Sex: Female
  Weight: 87.98 kg

DRUGS (4)
  1. WARFARIN [Suspect]
     Active Substance: WARFARIN
     Indication: PRODUCT USED FOR UNKNOWN INDICATION
     Dosage: UNK
     Route: 065
  2. REMODULIN [Suspect]
     Active Substance: TREPROSTINIL
     Indication: PULMONARY ARTERIAL HYPERTENSION
     Dosage: 0.008 ?G/KG, CONTINUING
     Route: 058
     Dates: start: 20191002
  3. OPSUMIT [Concomitant]
     Active Substance: MACITENTAN
     Indication: PRODUCT USED FOR UNKNOWN INDICATION
     Route: 065
  4. SILDENAFIL CITRATE. [Concomitant]
     Active Substance: SILDENAFIL CITRATE
     Indication: PRODUCT USED FOR UNKNOWN INDICATION
     Dosage: UNK
     Route: 065

REACTIONS (11)
  - Infusion site erythema [Unknown]
  - Infusion site oedema [Unknown]
  - Device programming error [Unknown]
  - Infusion site infection [Unknown]
  - Headache [Unknown]
  - Oxygen saturation decreased [Unknown]
  - Accidental overdose [Unknown]
  - Haemorrhage [Unknown]
  - Infusion site pain [Unknown]
  - Dermatitis contact [Unknown]
  - Infusion site warmth [Unknown]

NARRATIVE: CASE EVENT DATE: 2019
